FAERS Safety Report 10876835 (Version 1)
Quarter: 2015Q1

REPORT INFORMATION
  Report Type: Report from Study
  Country: US (occurrence: US)
  Receive Date: 20150302
  Receipt Date: 20150302
  Transmission Date: 20150721
  Serious: Yes (Hospitalization)
  Sender: FDA-Public Use
  Company Number: US-BIOGENIDEC-2015BI022739

PATIENT
  Age: 49 Year
  Sex: Female

DRUGS (12)
  1. TECFIDERA [Suspect]
     Active Substance: DIMETHYL FUMARATE
     Indication: MULTIPLE SCLEROSIS
     Dates: start: 201309
  2. ROPINIROLE. [Concomitant]
     Active Substance: ROPINIROLE
  3. LORAZEPAM. [Concomitant]
     Active Substance: LORAZEPAM
  4. TECFIDERA [Suspect]
     Active Substance: DIMETHYL FUMARATE
     Indication: MULTIPLE SCLEROSIS
     Route: 048
     Dates: end: 20150205
  5. LUTEIN [Concomitant]
     Active Substance: LUTEIN
  6. GABAPENTIN. [Concomitant]
     Active Substance: GABAPENTIN
  7. BACLOFEN. [Concomitant]
     Active Substance: BACLOFEN
  8. VITAMIN D-3 [Concomitant]
  9. SERTRALINE [Concomitant]
     Active Substance: SERTRALINE HYDROCHLORIDE
  10. REBIF [Concomitant]
     Active Substance: INTERFERON BETA-1A
     Dates: end: 20130927
  11. MIRENA [Concomitant]
     Active Substance: LEVONORGESTREL
     Route: 015
  12. VENLAFAXINE [Concomitant]
     Active Substance: VENLAFAXINE HYDROCHLORIDE

REACTIONS (1)
  - Clostridium difficile infection [Not Recovered/Not Resolved]

NARRATIVE: CASE EVENT DATE: 20150205
